FAERS Safety Report 14846342 (Version 2)
Quarter: 2018Q2

REPORT INFORMATION
  Report Type: Spontaneous
  Country: US (occurrence: US)
  Receive Date: 20180504
  Receipt Date: 20180605
  Transmission Date: 20180711
  Serious: Yes (Hospitalization)
  Sender: FDA-Public Use
  Company Number: US-ROCHE-2117397

PATIENT
  Age: 71 Year
  Sex: Male
  Weight: 67.19 kg

DRUGS (1)
  1. AVASTIN [Suspect]
     Active Substance: BEVACIZUMAB
     Indication: MACULAR DEGENERATION
     Dosage: LEFT EYE
     Route: 050
     Dates: start: 20160901, end: 2017

REACTIONS (4)
  - Pituitary tumour benign [Unknown]
  - Cerebrovascular accident [Unknown]
  - Intentional product use issue [Unknown]
  - Off label use [Unknown]

NARRATIVE: CASE EVENT DATE: 20180307
